FAERS Safety Report 15964888 (Version 2)
Quarter: 2019Q1

REPORT INFORMATION
  Report Type: Spontaneous
  Country: DE (occurrence: DE)
  Receive Date: 20190215
  Receipt Date: 20190315
  Transmission Date: 20190418
  Serious: Yes (Other)
  Sender: FDA-Public Use
  Company Number: DE-009507513-1902DEU005122

PATIENT
  Sex: Male
  Weight: 130 kg

DRUGS (6)
  1. RYDAPT [Interacting]
     Active Substance: MIDOSTAURIN
     Indication: ACUTE MYELOID LEUKAEMIA
     Dosage: 50 MG, BID
     Route: 048
     Dates: start: 20181005, end: 20181018
  2. CYTARABINE. [Concomitant]
     Active Substance: CYTARABINE
     Dosage: 470 MG, QD
     Route: 042
     Dates: start: 20180928, end: 20181004
  3. RYDAPT [Interacting]
     Active Substance: MIDOSTAURIN
     Dosage: 24 MG, QD
     Route: 042
     Dates: start: 20181124
  4. CYTARABINE. [Concomitant]
     Active Substance: CYTARABINE
     Indication: ACUTE MYELOID LEUKAEMIA
     Dosage: 14100 OT, QD
     Route: 042
     Dates: start: 20181122, end: 20181125
  5. POSACONAZOLE [Suspect]
     Active Substance: POSACONAZOLE
     Indication: PROPHYLAXIS
     Dosage: UNK
     Route: 065
  6. DAUNORUBICIN [Concomitant]
     Active Substance: DAUNORUBICIN
     Indication: ACUTE MYELOID LEUKAEMIA
     Dosage: 141 MG, QD
     Route: 042
     Dates: start: 20180928, end: 20181004

REACTIONS (3)
  - Hepatic candidiasis [Not Recovered/Not Resolved]
  - Drug interaction [Unknown]
  - Fungal infection [Recovering/Resolving]
